FAERS Safety Report 7346120 (Version 2)
Quarter: 2014Q3

REPORT INFORMATION
  Report Type: Spontaneous
  Country: US (occurrence: None)
  Receive Date: 20100319
  Receipt Date: 20140926
  Transmission Date: 20150326
  Serious: Yes (Other)
  Sender: FDA-Public Use
  Company Number: 2010S1001533

PATIENT
  Age: 64 Year
  Sex: Male
  Weight: 83 kg

DRUGS (5)
  1. ZETIA [Concomitant]
     Active Substance: EZETIMIBE
  2. FLEET [Suspect]
     Active Substance: BISACODYL\GLYCERIN\MINERAL OIL\SODIUM PHOSPHATE, DIBASIC\SODIUM PHOSPHATE, MONOBASIC
     Indication: COLONOSCOPY
  3. PHOSPHO-SODA [Suspect]
     Active Substance: SODIUM PHOSPHATE, DIBASIC\SODIUM PHOSPHATE, MONOBASIC
     Indication: COLONOSCOPY
     Dosage: PO
     Route: 048
     Dates: start: 20050629
  4. BENAZEPRIL HYDROCHLORIDE. [Concomitant]
     Active Substance: BENAZEPRIL HYDROCHLORIDE
  5. IBUPROFEN. [Concomitant]
     Active Substance: IBUPROFEN

REACTIONS (12)
  - Dehydration [None]
  - Renal failure [None]
  - Hyperparathyroidism [None]
  - Headache [None]
  - Hypertensive nephropathy [None]
  - Hypertension [None]
  - Somnolence [None]
  - Renal failure chronic [None]
  - Renal artery stenosis [None]
  - Pyrexia [None]
  - Renal disorder [None]
  - Renal failure acute [None]

NARRATIVE: CASE EVENT DATE: 20050708
